FAERS Safety Report 9478194 (Version 1)
Quarter: 2013Q3

REPORT INFORMATION
  Report Type: Spontaneous
  Country: US (occurrence: US)
  Receive Date: 20130827
  Receipt Date: 20130827
  Transmission Date: 20140515
  Serious: No
  Sender: FDA-Public Use
  Company Number: US-BAYER-2013-103082

PATIENT
  Age: 74 Year
  Sex: Female
  Weight: 62.59 kg

DRUGS (4)
  1. ALEVE GELCAPS [Suspect]
     Indication: ARTHRITIS
     Dosage: 1 DF, BID
     Route: 048
     Dates: start: 2011
  2. VITAMIN B12 [Concomitant]
  3. VITAMIN E [Concomitant]
  4. VITAMIN D [Concomitant]

REACTIONS (1)
  - Incorrect drug administration duration [None]
